FAERS Safety Report 17906921 (Version 3)
Quarter: 2020Q4

REPORT INFORMATION
  Report Type: Spontaneous
  Country: US (occurrence: US)
  Receive Date: 20200617
  Receipt Date: 20201214
  Transmission Date: 20210113
  Serious: No
  Sender: FDA-Public Use
  Company Number: US-PFIZER INC-2018241755

PATIENT
  Age: 70 Year
  Sex: Female
  Weight: 113.4 kg

DRUGS (2)
  1. IBRANCE [Suspect]
     Active Substance: PALBOCICLIB
     Indication: BREAST CANCER METASTATIC
     Dosage: 125 MG, CYCLIC (DAILY FOR 21 DAYS ON AND 7 DAYS OFF)
     Route: 048
     Dates: start: 2018
  2. FASLODEX [Concomitant]
     Active Substance: FULVESTRANT
     Indication: BREAST CANCER
     Dosage: 2 DF, MONTHLY; (2 INJECTIONS MONTHLY)

REACTIONS (2)
  - Product dose omission issue [Unknown]
  - Lymphoedema [Unknown]

NARRATIVE: CASE EVENT DATE: 20201202
